FAERS Safety Report 7023868-1 (Version None)
Quarter: 2010Q3

REPORT INFORMATION
  Report Type: 
  Country: None (occurrence: None)
  Receive Date: 20100916
  Receipt Date: 20100607
  Transmission Date: 20110219
  Serious: Yes (Hospitalization, Other)
  Sender: FDA-Public Use
  Company Number: DKLU1062769

PATIENT
  Age: 10 Month
  Sex: Male
  Weight: 8.8 kg

DRUGS (6)
  1. SABRIL [Suspect]
     Indication: CONVULSION
     Dosage: 500 MG MILLIGRAM(S), 2 IN 1 D, ORAL ; 125 MG MILLIGRAM(S), 2 IN 1 D, ORAL
     Route: 048
     Dates: start: 20100525, end: 20100527
  2. SABRIL [Suspect]
     Indication: CONVULSION
     Dosage: 500 MG MILLIGRAM(S), 2 IN 1 D, ORAL ; 125 MG MILLIGRAM(S), 2 IN 1 D, ORAL
     Route: 048
     Dates: start: 20100602
  3. CORTEF [Concomitant]
  4. VITAMIN B6 [Concomitant]
  5. MIRALAX [Concomitant]
  6. ACTH [Concomitant]

REACTIONS (1)
  - APNOEA [None]
